FAERS Safety Report 15223637 (Version 1)
Quarter: 2018Q3

REPORT INFORMATION
  Report Type: Spontaneous
  Country: US (occurrence: US)
  Receive Date: 20180705
  Receipt Date: 20180705
  Transmission Date: 20181010
  Serious: Yes (Disabling)
  Sender: FDA-Public Use
  Company Number: None

PATIENT
  Age: 61 Year
  Sex: Female
  Weight: 55.79 kg

DRUGS (11)
  1. GENERIC CLARITIN [Concomitant]
     Active Substance: LORATADINE
  2. SUDAFED [Concomitant]
     Active Substance: PSEUDOEPHEDRINE HYDROCHLORIDE
  3. VITAMIN D3 [Concomitant]
     Active Substance: CHOLECALCIFEROL
  4. MAGNESIUM [Concomitant]
     Active Substance: MAGNESIUM
  5. CIPROFLOXACIN HCL 250MG TABLET ^SUBST FOR: CIPRO^ [Suspect]
     Active Substance: CIPROFLOXACIN HYDROCHLORIDE
     Indication: URINARY TRACT INFECTION
     Dosage: ?          QUANTITY:1 DF DOSAGE FORM;?
     Route: 048
     Dates: start: 20180419, end: 20180420
  6. ESTRACE [Concomitant]
     Active Substance: ESTRADIOL
  7. MULTIVITAMIN/MINERAL [Concomitant]
  8. VITAMIN B12 [Concomitant]
     Active Substance: CYANOCOBALAMIN
  9. C [Concomitant]
  10. VITAMIN B COMPLEX [Concomitant]
     Active Substance: CYANOCOBALAMIN\DEXPANTHENOL\NIACINAMIDE\PYRIDOXINE HYDROCHLORIDE\RIBOFLAVIN 5^-PHOSPHATE SODIUM\THIAMINE HYDROCHLORIDE\VITAMIN B COMPLEX
  11. E [Concomitant]

REACTIONS (12)
  - Insomnia [None]
  - Feeling hot [None]
  - Feeling abnormal [None]
  - Skin disorder [None]
  - Muscle strain [None]
  - Rash [None]
  - Neuropathy peripheral [None]
  - Paraesthesia [None]
  - Muscle twitching [None]
  - Malaise [None]
  - Tendonitis [None]
  - Small fibre neuropathy [None]

NARRATIVE: CASE EVENT DATE: 20180419
